FAERS Safety Report 24673517 (Version 1)
Quarter: 2024Q4

REPORT INFORMATION
  Report Type: Spontaneous
  Country: US (occurrence: US)
  Receive Date: 20241128
  Receipt Date: 20241128
  Transmission Date: 20250115
  Serious: Yes (Hospitalization, Other)
  Sender: ENDO
  Company Number: US-ENDO USA, INC.-2024-050767

PATIENT
  Age: 16 Year
  Sex: Female

DRUGS (1)
  1. KETALAR [Suspect]
     Active Substance: KETAMINE HYDROCHLORIDE
     Indication: Product used for unknown indication
     Dosage: UNK UNKNOWN, UNKNOWN
     Route: 065

REACTIONS (5)
  - IgA nephropathy [Not Recovered/Not Resolved]
  - Hepatic cirrhosis [Not Recovered/Not Resolved]
  - End stage renal disease [Not Recovered/Not Resolved]
  - Glomerulonephritis rapidly progressive [Not Recovered/Not Resolved]
  - Drug abuse [Not Recovered/Not Resolved]
